FAERS Safety Report 5598413-8 (Version None)
Quarter: 2008Q1

REPORT INFORMATION
  Report Type: 
  Country: None (occurrence: None)
  Receive Date: 20080122
  Receipt Date: 20080111
  Transmission Date: 20080703
  Serious: Yes (Hospitalization, Other)
  Sender: FDA-Public Use
  Company Number: US-JNJFOC-20080102852

PATIENT
  Sex: Male

DRUGS (1)
  1. FENTANYL TRANSDERMAL SYSTEM [Suspect]
     Indication: PAIN
     Dosage: 1X 100UG/HR PATCH PLUS 3X 25UG/HR PATCHES
     Route: 062

REACTIONS (2)
  - NEOPLASM MALIGNANT [None]
  - RENAL CELL CARCINOMA [None]
